FAERS Safety Report 19961471 (Version 1)
Quarter: 2021Q4

REPORT INFORMATION
  Report Type: Other
  Country: GB (occurrence: GB)
  Receive Date: 20211017
  Receipt Date: 20211017
  Transmission Date: 20220304
  Serious: No
  Sender: FDA-Public Use
  Company Number: None

PATIENT
  Age: 22 Year
  Sex: Female
  Weight: 52.8 kg

DRUGS (4)
  1. LEVONORGESTREL [Suspect]
     Active Substance: LEVONORGESTREL
     Indication: Contraception
     Dosage: 1 DOSAGE FORM, QD (ONE TABLET DAILY FOR 21 DAYS; SUBSEQUENT COURSES REPEATED AFTER 7-DAY TABLET FREE
     Route: 048
     Dates: start: 20210819
  2. ETHINYL ESTRADIOL [Suspect]
     Active Substance: ETHINYL ESTRADIOL
     Indication: Contraception
     Dosage: 1 DOSAGE FORM, QD (ONE TABLET DAILY FOR 21 DAYS; SUBSEQUENT COURSES REPEATED AFTER 7-DAY TABLET FREE
     Route: 048
     Dates: start: 20210819
  3. PFIZER-BIONTECH COVID-19 VACCINE [Concomitant]
     Active Substance: TOZINAMERAN
     Indication: Product used for unknown indication
     Dosage: 1 DOSAGE FORM (1 DOSE BY INTRAMUSCULAR INJECTION)
     Route: 030
     Dates: start: 20210811
  4. NITROFURANTOIN [Concomitant]
     Active Substance: NITROFURANTOIN
     Indication: Product used for unknown indication
     Dosage: 1 DOSAGE FORM, BID
     Route: 065
     Dates: start: 20210831

REACTIONS (1)
  - Headache [Recovering/Resolving]
